FAERS Safety Report 7895089-1 (Version None)
Quarter: 2011Q4

REPORT INFORMATION
  Report Type: 
  Country: None (occurrence: None)
  Receive Date: 20111106
  Receipt Date: 20110823
  Transmission Date: 20120403
  Serious: No
  Sender: FDA-Public Use
  Company Number: US-AMGEN-USASP2011006240

PATIENT
  Age: 58 Year
  Sex: Female

DRUGS (2)
  1. ENBREL [Suspect]
     Indication: PSORIASIS
     Dosage: 50 MG, QWK
     Dates: start: 20081201, end: 20110201
  2. ENBREL [Suspect]
     Indication: RHEUMATOID ARTHRITIS

REACTIONS (13)
  - PELVIC PAIN [None]
  - OPEN WOUND [None]
  - PSORIASIS [None]
  - WOUND HAEMORRHAGE [None]
  - EAR INFECTION [None]
  - LARYNGITIS [None]
  - WOUND COMPLICATION [None]
  - INSOMNIA [None]
  - BACK PAIN [None]
  - SKIN MASS [None]
  - SINUSITIS [None]
  - PHARYNGITIS STREPTOCOCCAL [None]
  - ARTHRALGIA [None]
